FAERS Safety Report 8747313 (Version 2)
Quarter: 2013Q1

REPORT INFORMATION
  Report Type: Spontaneous
  Country: BR (occurrence: BR)
  Receive Date: 20120827
  Receipt Date: 20130205
  Transmission Date: 20140127
  Serious: Yes (Other)
  Sender: FDA-Public Use
  Company Number: PHHY2012BR072842

PATIENT
  Sex: Male

DRUGS (7)
  1. DIOVAN HCT [Suspect]
     Indication: HYPERTENSION
     Dosage: UNK UKN, QD
  2. DIOVAN HCT [Suspect]
     Dosage: 0.5 DF, UNK
  3. GALVUS MET [Concomitant]
     Indication: DIABETES MELLITUS
     Dosage: 2 DF,DAILY
     Route: 048
  4. GLIMEPIRIDE [Concomitant]
     Indication: DIABETES MELLITUS
     Dosage: 1 DF, DAILY
     Route: 048
  5. CILOSTAZOL [Concomitant]
     Dosage: 1 DF DAILY
     Route: 048
  6. SINVASTATINA [Concomitant]
     Dosage: 40 MG DAILY
     Route: 048
  7. ASPIRIN CHILDREN [Concomitant]
     Dosage: 100 MG, DAILY
     Route: 048

REACTIONS (4)
  - Diabetes mellitus [Recovered/Resolved]
  - Blood glucose increased [Recovered/Resolved]
  - Blood triglycerides increased [Recovered/Resolved]
  - Wrong technique in drug usage process [Recovered/Resolved]
